FAERS Safety Report 9007231 (Version 4)
Quarter: 2015Q2

REPORT INFORMATION
  Report Type: Spontaneous
  Country: US (occurrence: US)
  Receive Date: 20130110
  Receipt Date: 20150403
  Transmission Date: 20150821
  Serious: Yes (Death, Hospitalization, Disabling, Other)
  Sender: FDA-Public Use
  Company Number: US-009507513-1301USA000981

PATIENT
  Sex: Female
  Weight: 84.17 kg

DRUGS (5)
  1. FOSAMAX [Suspect]
     Active Substance: ALENDRONATE SODIUM
     Dosage: 70 MG, UNK
     Route: 048
     Dates: start: 20040107, end: 20040413
  2. FOSAMAX [Suspect]
     Active Substance: ALENDRONATE SODIUM
     Indication: OSTEOPOROSIS
     Dosage: UNK
     Route: 048
     Dates: start: 19951212, end: 20080321
  3. POTASSIUM (UNSPECIFIED) [Concomitant]
     Active Substance: POTASSIUM
     Dosage: 20 MEQ, TID
     Dates: start: 1993, end: 20081027
  4. FOSAMAX [Suspect]
     Active Substance: ALENDRONATE SODIUM
     Dosage: 70 MG, UNK
     Route: 048
     Dates: start: 20060105, end: 20080321
  5. ALENDRONATE SODIUM. [Suspect]
     Active Substance: ALENDRONATE SODIUM
     Indication: OSTEOPOROSIS
     Dosage: 70 MG, UNK
     Dates: start: 20080317, end: 20081002

REACTIONS (88)
  - Chest pain [Unknown]
  - Dyspnoea [Unknown]
  - Gastric polyps [Unknown]
  - Surgery [Unknown]
  - Respiratory failure [Unknown]
  - Spinal compression fracture [Unknown]
  - Arrhythmia [Unknown]
  - Acne [Unknown]
  - Hyponatraemia [Unknown]
  - Wound [Unknown]
  - Spinal osteoarthritis [Unknown]
  - Pulmonary hypertension [Unknown]
  - Intramedullary rod insertion [Unknown]
  - Femur fracture [Recovered/Resolved]
  - Low turnover osteopathy [Not Recovered/Not Resolved]
  - Pneumonia aspiration [Unknown]
  - Pancreatitis [Unknown]
  - Lower limb fracture [Unknown]
  - Thrombosis [Unknown]
  - Bundle branch block right [Unknown]
  - Bursitis [Unknown]
  - Iron deficiency anaemia [Unknown]
  - Muscle spasms [Unknown]
  - Femur fracture [Not Recovered/Not Resolved]
  - Cardiac failure congestive [Fatal]
  - Sacroiliitis [Unknown]
  - Arthralgia [Not Recovered/Not Resolved]
  - Bacterial infection [Unknown]
  - Hypertonic bladder [Unknown]
  - Femur fracture [Fatal]
  - Stress fracture [Not Recovered/Not Resolved]
  - Hypertension [Unknown]
  - Anxiety [Unknown]
  - Amnesia [Unknown]
  - Scapula fracture [Unknown]
  - Left ventricular hypertrophy [Unknown]
  - Atrial fibrillation [Fatal]
  - Gastric polypectomy [Unknown]
  - Spinal compression fracture [Unknown]
  - Intramedullary rod insertion [Unknown]
  - Acute kidney injury [Unknown]
  - Renal tubular necrosis [Unknown]
  - Hypotension [Unknown]
  - Fractured sacrum [Unknown]
  - Depression [Unknown]
  - Coronary artery disease [Unknown]
  - Gastrooesophageal reflux disease [Unknown]
  - Osteoarthritis [Unknown]
  - Pernicious anaemia [Unknown]
  - Aspiration pleural cavity [Unknown]
  - Clostridium difficile colitis [Recovered/Resolved]
  - Skin disorder [Unknown]
  - Infection [Unknown]
  - Urinary tract infection [Unknown]
  - Osteosclerosis [Unknown]
  - Urinary incontinence [Unknown]
  - Pleural effusion [Recovering/Resolving]
  - Constipation [Unknown]
  - Drug ineffective [Unknown]
  - Cholangitis [Unknown]
  - Post procedural infection [Unknown]
  - Osteoporosis [Not Recovered/Not Resolved]
  - Multi-organ failure [Unknown]
  - Chronic kidney disease [Not Recovered/Not Resolved]
  - Vitamin D deficiency [Unknown]
  - Fungal infection [Unknown]
  - Ankle fracture [Unknown]
  - Stress [Unknown]
  - Cellulitis [Unknown]
  - Iron deficiency [Unknown]
  - Arthritis [Unknown]
  - Vitamin B12 deficiency [Unknown]
  - Candida infection [Unknown]
  - Insomnia [Unknown]
  - Intramedullary rod insertion [Unknown]
  - Deafness [Unknown]
  - Post procedural haematoma [Recovering/Resolving]
  - Haematoma evacuation [Unknown]
  - Thrombosis [Unknown]
  - Osteoarthritis [Unknown]
  - Addison^s disease [Unknown]
  - Cardiac disorder [Unknown]
  - Varicose vein ruptured [Unknown]
  - Dysuria [Unknown]
  - Spinal compression fracture [Unknown]
  - Skin ulcer [Unknown]
  - Pulmonary fibrosis [Not Recovered/Not Resolved]
  - Vascular pain [Unknown]

NARRATIVE: CASE EVENT DATE: 1996
